FAERS Safety Report 4268857-5 (Version None)
Quarter: 2004Q1

REPORT INFORMATION
  Report Type: 
  Country: None (occurrence: None)
  Receive Date: 20040109
  Receipt Date: 20031224
  Transmission Date: 20041129
  Serious: Yes (Other)
  Sender: FDA-Public Use
  Company Number: USA030843971

PATIENT
  Age: 77 Year
  Sex: Male
  Weight: 68 kg

DRUGS (16)
  1. FORTEO [Suspect]
     Indication: OSTEOPOROSIS
     Dosage: 20 UG/DAY
     Dates: start: 20030805
  2. PREDNISONE [Concomitant]
  3. ARAVA [Concomitant]
  4. VIOXX [Concomitant]
  5. EPOGEN [Concomitant]
  6. GLUCOSAMINE [Concomitant]
  7. POTASSIUM CHLORIDE [Concomitant]
  8. METHOTREXATE [Concomitant]
  9. REMERON [Concomitant]
  10. DURICEF [Concomitant]
  11. PRILOSEC (OMEOPRAZOLE) [Concomitant]
  12. ASPIRIN [Concomitant]
  13. FOLIC ACID [Concomitant]
  14. OSCAL (CALCIUM CARBONATE) [Concomitant]
  15. FLONASE [Concomitant]
  16. PROCRIT (ERYTHROPOIETIN) [Concomitant]

REACTIONS (5)
  - ANAEMIA [None]
  - CONDITION AGGRAVATED [None]
  - INJECTION SITE HAEMORRHAGE [None]
  - PHARMACEUTICAL PRODUCT COMPLAINT [None]
  - PLATELET COUNT DECREASED [None]
